FAERS Safety Report 9433579 (Version 2)
Quarter: 2013Q3

REPORT INFORMATION
  Report Type: Report from Study
  Country: US (occurrence: US)
  Receive Date: 20130731
  Receipt Date: 20130827
  Transmission Date: 20140515
  Serious: Yes (Life-Threatening)
  Sender: FDA-Public Use
  Company Number: PHEH2013US015926

PATIENT
  Age: 83 Year
  Sex: Female

DRUGS (3)
  1. AFINITOR [Suspect]
     Indication: BREAST CANCER
     Dosage: UNK
     Route: 048
     Dates: start: 20130710, end: 20130710
  2. AFINITOR [Suspect]
     Indication: BREAST CANCER
  3. COUMADINE [Concomitant]

REACTIONS (4)
  - Feeling abnormal [Unknown]
  - Headache [Unknown]
  - Vomiting [Unknown]
  - Hypertension [Unknown]
